FAERS Safety Report 5150184-5 (Version None)
Quarter: 2006Q4

REPORT INFORMATION
  Report Type: 
  Country: None (occurrence: None)
  Receive Date: 20061108
  Receipt Date: 20061030
  Transmission Date: 20070319
  Serious: Yes (Other)
  Sender: FDA-Public Use
  Company Number: US-2006-006932

PATIENT
  Age: 32 Year
  Sex: Female

DRUGS (4)
  1. MIRENA [Suspect]
     Indication: CONTRACEPTION
     Dosage: 20 UG/DAY, CONT, INTRA-UTERINE
     Route: 015
     Dates: start: 20040801
  2. SEASONALE [Concomitant]
  3. TOPAMAX [Concomitant]
  4. LAMICTAL [Concomitant]

REACTIONS (2)
  - AMENORRHOEA [None]
  - CONVULSION [None]
